FAERS Safety Report 23915024 (Version 1)
Quarter: 2024Q2

REPORT INFORMATION
  Report Type: Spontaneous
  Country: US (occurrence: US)
  Receive Date: 20240529
  Receipt Date: 20240529
  Transmission Date: 20240716
  Serious: No
  Sender: FDA-Public Use
  Company Number: US-PERRIGO-24US001946

PATIENT
  Age: 35 Year
  Sex: Male
  Weight: 90.703 kg

DRUGS (2)
  1. MINOXIDIL [Suspect]
     Active Substance: MINOXIDIL
     Indication: Product used for unknown indication
     Dosage: 0.25 CAPFUL, QD
     Route: 061
     Dates: start: 20240208, end: 20240210
  2. MINOXIDIL [Suspect]
     Active Substance: MINOXIDIL
     Dosage: 0.25 CAPFUL, QD
     Route: 061
     Dates: start: 20240212, end: 20240215

REACTIONS (5)
  - Headache [Recovered/Resolved]
  - Vertigo [Recovered/Resolved]
  - Vision blurred [Recovered/Resolved]
  - Inappropriate schedule of product administration [Recovered/Resolved]
  - Underdose [Recovered/Resolved]

NARRATIVE: CASE EVENT DATE: 20240208
